FAERS Safety Report 21559539 (Version 1)
Quarter: 2022Q4

REPORT INFORMATION
  Report Type: Spontaneous
  Country: US (occurrence: US)
  Receive Date: 20221107
  Receipt Date: 20221107
  Transmission Date: 20230112
  Serious: No
  Sender: FDA-Public Use
  Company Number: US-ChurchDwight-2022-CDW-01628

PATIENT
  Sex: Female

DRUGS (1)
  1. EUCALYPTOL\MENTHOL [Suspect]
     Active Substance: EUCALYPTOL\MENTHOL
     Indication: Nasopharyngitis
     Route: 045

REACTIONS (2)
  - Anosmia [Unknown]
  - Ageusia [Unknown]
